FAERS Safety Report 13731813 (Version 1)
Quarter: 2017Q3

REPORT INFORMATION
  Report Type: Spontaneous
  Country: JP (occurrence: JP)
  Receive Date: 20170707
  Receipt Date: 20170707
  Transmission Date: 20171127
  Serious: Yes (Other)
  Sender: FDA-Public Use
  Company Number: JP-PFIZER INC-2017292789

PATIENT
  Age: 76 Year
  Sex: Male

DRUGS (1)
  1. RHEUMATREX [Suspect]
     Active Substance: METHOTREXATE SODIUM
     Dosage: UNK
     Route: 048
     Dates: start: 2008, end: 201310

REACTIONS (2)
  - Epstein-Barr virus infection [Unknown]
  - Mucocutaneous ulceration [Unknown]

NARRATIVE: CASE EVENT DATE: 20131101
